FAERS Safety Report 17832749 (Version 1)
Quarter: 2020Q2

REPORT INFORMATION
  Report Type: Spontaneous
  Country: US (occurrence: US)
  Receive Date: 20200528
  Receipt Date: 20200528
  Transmission Date: 20200714
  Serious: No
  Sender: FDA-Public Use
  Company Number: US-ELI_LILLY_AND_COMPANY-US202005006957

PATIENT
  Sex: Female

DRUGS (2)
  1. HUMATROPE [Suspect]
     Active Substance: SOMATROPIN
     Dosage: 1.1 MG, SEVEN TIMES A WEEK
     Route: 065
     Dates: start: 202005
  2. HUMATROPE [Suspect]
     Active Substance: SOMATROPIN
     Indication: SHORT STATURE
     Dosage: 1.1 MG, SEVEN TIMES A WEEK
     Route: 065

REACTIONS (3)
  - Seasonal allergy [Unknown]
  - Headache [Unknown]
  - Underdose [Unknown]
